FAERS Safety Report 19935927 (Version 1)
Quarter: 2021Q4

REPORT INFORMATION
  Report Type: Spontaneous
  Country: US (occurrence: US)
  Receive Date: 20211008
  Receipt Date: 20211008
  Transmission Date: 20220304
  Serious: No
  Sender: FDA-Public Use
  Company Number: US-GE HEALTHCARE LIFE SCIENCES-2021CSU004246

PATIENT
  Sex: Male

DRUGS (4)
  1. MYOVIEW [Suspect]
     Active Substance: TECHNETIUM TC-99M TETROFOSMIN
     Indication: Cardiac imaging procedure
     Dosage: 1.1347 MBQ (REPORTED AS 30.67 UCI), ONCE
     Route: 065
     Dates: start: 20210722, end: 20210722
  2. MYOVIEW [Suspect]
     Active Substance: TECHNETIUM TC-99M TETROFOSMIN
     Indication: Product used for unknown indication
     Dosage: 0.4007 MBQ (REPORTED AS 10.83 UCI), ONCE
     Route: 065
     Dates: start: 20210722, end: 20210722
  3. TECHNETIUM TC-99M [Concomitant]
     Active Substance: TECHNETIUM TC-99M
     Indication: Cardiac imaging procedure
     Dosage: UNK, SINGLE
     Route: 065
     Dates: start: 20210722, end: 20210722
  4. TECHNETIUM TC-99M [Concomitant]
     Active Substance: TECHNETIUM TC-99M
     Indication: Product used for unknown indication

REACTIONS (2)
  - Radioisotope scan abnormal [Recovered/Resolved]
  - No adverse event [Recovered/Resolved]

NARRATIVE: CASE EVENT DATE: 20210722
